FAERS Safety Report 8593407-2 (Version None)
Quarter: 2012Q3

REPORT INFORMATION
  Report Type: 
  Country: None (occurrence: None)
  Receive Date: 20120814
  Receipt Date: 20120718
  Transmission Date: 20120928
  Serious: Yes (Hospitalization, Other)
  Sender: FDA-Public Use
  Company Number: JP-009507513-2012SP001248

PATIENT

DRUGS (10)
  1. PEGINTERFERON ALFA-2B [Suspect]
     Indication: HEPATITIS C
     Dosage: 1.5 ?G/KG, QW
     Route: 058
     Dates: start: 20111221, end: 20111221
  2. TELAVIC [Suspect]
     Indication: HEPATITIS C
     Route: 048
     Dates: start: 20111221, end: 20111223
  3. VERAPAMIL HCL [Concomitant]
     Indication: ATRIAL FIBRILLATION
     Dosage: 120 MG, QD
     Route: 048
     Dates: end: 20111223
  4. INVESTIGATIONAL DRUG (UNSPECIFIED) [Suspect]
     Indication: HEPATITIS C
     Dosage: 2250 MG, QD
     Route: 048
     Dates: start: 20111221, end: 20111223
  5. REBETOL [Suspect]
     Indication: HEPATITIS C
     Dosage: 800 MG, QD
     Route: 048
     Dates: start: 20111221, end: 20111223
  6. ASPIRIN [Concomitant]
     Indication: ATRIAL FIBRILLATION
     Dosage: 100 MG, QD
     Route: 048
     Dates: end: 20111223
  7. PREDNISOLONE [Concomitant]
     Indication: PROPHYLAXIS
  8. PREDNISOLONE [Concomitant]
     Indication: URTICARIA
     Dosage: FORMULATION POR
     Route: 048
     Dates: end: 20111223
  9. FAMOTIDINE [Concomitant]
     Indication: GASTRIC ULCER
     Dosage: FORMULATION POR
     Route: 048
     Dates: end: 20111223
  10. FAMOTIDINE [Concomitant]
     Indication: PROPHYLAXIS

REACTIONS (4)
  - MESENTERIC VEIN THROMBOSIS [None]
  - HEPATIC FUNCTION ABNORMAL [None]
  - ACIDOSIS [None]
  - RENAL IMPAIRMENT [None]
